FAERS Safety Report 14717852 (Version 2)
Quarter: 2018Q4

REPORT INFORMATION
  Report Type: Spontaneous
  Country: US (occurrence: US)
  Receive Date: 20180404
  Receipt Date: 20181105
  Transmission Date: 20190204
  Serious: No
  Sender: FDA-Public Use
  Company Number: US-SA-2018SA033057

PATIENT
  Age: 18 Year
  Sex: Male
  Weight: 88.4 kg

DRUGS (1)
  1. DUPIXENT [Suspect]
     Active Substance: DUPILUMAB
     Dosage: 300 MG,QOW
     Route: 058
     Dates: start: 201806

REACTIONS (2)
  - Product dose omission [Unknown]
  - Influenza [Unknown]

NARRATIVE: CASE EVENT DATE: 20181011
